FAERS Safety Report 7588324-0 (Version None)
Quarter: 2011Q3

REPORT INFORMATION
  Report Type: 
  Country: None (occurrence: None)
  Receive Date: 20110705
  Receipt Date: 20090125
  Transmission Date: 20111222
  Serious: Yes (Death, Other)
  Sender: FDA-Public Use
  Company Number: US-BAYER-200911456NA

PATIENT
  Age: 49 Year
  Sex: Male
  Weight: 80 kg

DRUGS (32)
  1. TRASYLOL [Suspect]
     Indication: CORONARY ARTERY BYPASS
     Dosage: 200 ML LOADING DOSE
     Route: 042
     Dates: start: 20030206, end: 20030206
  2. ZOCOR [Concomitant]
     Dosage: 40 MG, QD
     Route: 048
  3. VERSED [Concomitant]
     Dosage: UNK
     Route: 042
     Dates: start: 20030130, end: 20030130
  4. MORPHINE [Concomitant]
     Dosage: 4 MG, UNK
     Route: 042
     Dates: start: 20030206
  5. TRASYLOL [Suspect]
     Indication: MITRAL VALVE REPLACEMENT
     Dosage: 1 ML, ONCE, TEST DOSE
     Route: 042
     Dates: start: 20030205, end: 20030206
  6. TRASYLOL [Suspect]
     Dosage: 50 ML/HR INFUSION
     Route: 042
     Dates: start: 20030206, end: 20030206
  7. VANCOMYCIN [Concomitant]
     Dosage: 1 G, UNK
     Route: 042
     Dates: start: 20030128, end: 20030203
  8. VANCOMYCIN [Concomitant]
     Dosage: 1 G, UNK
     Route: 042
     Dates: start: 20030206
  9. LOPRESSOR [Concomitant]
     Dosage: 1 G, EVERY 8 HRS
     Route: 042
     Dates: start: 20030130
  10. VERSED [Concomitant]
     Dosage: VARIED DOSES
     Route: 042
     Dates: start: 20030206, end: 20030206
  11. NITROGLYCERIN [Concomitant]
     Dosage: 10ML/HR DRIP
     Route: 042
     Dates: start: 20030126
  12. CARDIZEM [Concomitant]
     Dosage: 20 MG/HR, UNK
     Route: 042
     Dates: start: 20030201
  13. CARDIZEM [Concomitant]
     Dosage: 10 MG, UNK, DRIP
     Route: 042
     Dates: start: 20030206
  14. POTASSIUM [Concomitant]
     Dosage: 20 MEQ, UNK
     Route: 042
  15. CONTRAST MEDIA [Suspect]
     Indication: CARDIAC VENTRICULOGRAM LEFT
     Dosage: 24 ML, UNK
     Dates: start: 20030125
  16. HEPARIN [Concomitant]
     Dosage: 34000 U, UNK
     Route: 042
     Dates: start: 20030206
  17. LASIX [Concomitant]
     Dosage: 40 MG, EVERY 8 HRS
     Route: 042
     Dates: start: 20030127
  18. LASIX [Concomitant]
     Dosage: 80 MG, UNK
     Route: 042
     Dates: start: 20030206
  19. OPTIRAY 300 [Concomitant]
     Indication: CATHETERISATION CARDIAC
     Dosage: 250 ML, UNK
     Dates: start: 20030125
  20. DIABETA [Concomitant]
     Dosage: 5 MG, QD, YEARS
     Route: 048
  21. ZAROXOLYN [Concomitant]
     Dosage: 10 MG, QD
     Route: 042
     Dates: start: 20030126
  22. PLAVIX [Concomitant]
     Dosage: 75 MG, QD
     Route: 048
     Dates: start: 20030126
  23. LEVOPHED [Concomitant]
     Dosage: 8 MCG/MIN
     Route: 042
     Dates: start: 20030126
  24. LEVOPHED [Concomitant]
     Dosage: 4MG/250ML AT 25ML/HR
     Route: 042
     Dates: start: 20030206
  25. FENTANYL [Concomitant]
     Dosage: VARIED DOSES
     Route: 042
     Dates: start: 20030206, end: 20030206
  26. ISOPRINOSINE [Concomitant]
     Dosage: VARIED RATE
     Route: 042
     Dates: start: 20030206, end: 20030206
  27. CARDIZEM [Concomitant]
     Dosage: 10 MG, ONCE, BOLUS NOW
     Route: 042
     Dates: start: 20030201
  28. HEPARIN [Concomitant]
     Dosage: 3000 U, UNK
     Route: 042
     Dates: start: 20030125
  29. LEVAQUIN [Concomitant]
     Dosage: 500 MG, QD
     Route: 042
     Dates: start: 20030127
  30. PLAVIX [Concomitant]
     Dosage: 300 MG, ONCE, NOW
     Route: 048
     Dates: start: 20030126
  31. ACETYLSALICYLIC ACID SRT [Concomitant]
     Dosage: 325 MG, QD
     Route: 048
     Dates: start: 20030126
  32. CONTRAST MEDIA [Suspect]
     Indication: ARTERIOGRAM CORONARY
     Dosage: UNK
     Dates: start: 20030125

REACTIONS (13)
  - UNEVALUABLE EVENT [None]
  - PAIN [None]
  - ANHEDONIA [None]
  - RENAL IMPAIRMENT [None]
  - ANXIETY [None]
  - INJURY [None]
  - RENAL INJURY [None]
  - EMOTIONAL DISTRESS [None]
  - STRESS [None]
  - MULTI-ORGAN FAILURE [None]
  - FEAR [None]
  - DEATH [None]
  - RENAL FAILURE [None]
